FAERS Safety Report 5332051-7 (Version None)
Quarter: 2007Q2

REPORT INFORMATION
  Report Type: 
  Country: None (occurrence: None)
  Receive Date: 20070523
  Receipt Date: 20070514
  Transmission Date: 20071010
  Serious: Yes (Other)
  Sender: FDA-Public Use
  Company Number: US-BRACCO-BDI-009559

PATIENT
  Age: 49 Year
  Sex: Female

DRUGS (7)
  1. MULTIHANCE [Suspect]
     Route: 042
     Dates: start: 20050401, end: 20050401
  2. MULTIHANCE [Suspect]
     Route: 042
     Dates: start: 20050509, end: 20050509
  3. OMNISCAN [Suspect]
     Indication: TRANSPLANT EVALUATION
     Route: 042
     Dates: start: 20040501, end: 20040501
  4. OMNISCAN [Suspect]
     Indication: LIVER SCAN
     Route: 042
     Dates: start: 20040501, end: 20040501
  5. OMNISCAN [Suspect]
     Route: 042
     Dates: start: 20041102, end: 20041102
  6. OMNISCAN [Suspect]
     Route: 042
     Dates: start: 20041102, end: 20041102
  7. NONE REPORTED [Concomitant]

REACTIONS (1)
  - NEPHROGENIC FIBROSING DERMOPATHY [None]
